FAERS Safety Report 4526504-9 (Version None)
Quarter: 2004Q4

REPORT INFORMATION
  Report Type: 
  Country: None (occurrence: None)
  Receive Date: 20041210
  Receipt Date: 20041126
  Transmission Date: 20050328
  Serious: Yes (Hospitalization)
  Sender: FDA-Public Use
  Company Number: A06200400337

PATIENT
  Age: 54 Year
  Sex: Female

DRUGS (1)
  1. PLAQUENIL [Suspect]
     Dosage: ORAL
     Route: 048

REACTIONS (2)
  - CHEILITIS [None]
  - EXANTHEM [None]
